FAERS Safety Report 9579935 (Version 1)
Quarter: 2013Q3

REPORT INFORMATION
  Report Type: Spontaneous
  Country: DE (occurrence: None)
  Receive Date: 20130930
  Receipt Date: 20130930
  Transmission Date: 20140515
  Serious: Yes (Hospitalization)
  Sender: FDA-Public Use
  Company Number: AUR-APL-2013-07957

PATIENT
  Age: 64 Year
  Sex: Male
  Weight: 90 kg

DRUGS (1)
  1. LEVOFLOXACIN [Suspect]
     Indication: PROSTATITIS
     Dosage: 1000 MG ( 500 MG, 2 IN 1 D), ORAL
     Route: 048

REACTIONS (1)
  - VIIth nerve paralysis [None]
